FAERS Safety Report 8329113-9 (Version None)
Quarter: 2012Q2

REPORT INFORMATION
  Report Type: 
  Country: None (occurrence: None)
  Receive Date: 20120502
  Receipt Date: 20120424
  Transmission Date: 20120825
  Serious: Yes (Death)
  Sender: FDA-Public Use
  Company Number: PHHY2012FR036043

PATIENT

DRUGS (3)
  1. BACLOFEN [Suspect]
     Dosage: 50 MG
     Route: 048
  2. BENZODIAZEPINES [Suspect]
  3. MEPROBAMATE [Suspect]

REACTIONS (3)
  - COMPLETED SUICIDE [None]
  - RESPIRATORY ARREST [None]
  - CARDIAC ARREST [None]
